FAERS Safety Report 11727207 (Version 5)
Quarter: 2017Q3

REPORT INFORMATION
  Report Type: Report from Study
  Country: JP (occurrence: JP)
  Receive Date: 20151112
  Receipt Date: 20170906
  Transmission Date: 20171127
  Serious: Yes (Death)
  Sender: FDA-Public Use
  Company Number: JP-SA-2015SA179944

PATIENT
  Age: 57 Year
  Sex: Male
  Weight: 61.8 kg

DRUGS (10)
  1. DECADRON [Concomitant]
     Active Substance: DEXAMETHASONE
     Indication: PREMEDICATION
     Route: 042
     Dates: start: 20150513, end: 20150513
  2. PREDONINE [Concomitant]
     Active Substance: PREDNISOLONE
     Indication: PROSTATE CANCER
     Dates: end: 20150513
  3. ZANTAC [Concomitant]
     Active Substance: RANITIDINE HYDROCHLORIDE
     Indication: PREMEDICATION
     Route: 042
     Dates: start: 20150513, end: 20150513
  4. DECADRON [Concomitant]
     Active Substance: DEXAMETHASONE
     Indication: PREMEDICATION
     Route: 042
     Dates: start: 20120110, end: 20150615
  5. JEVTANA [Suspect]
     Active Substance: CABAZITAXEL
     Indication: HORMONE-REFRACTORY PROSTATE CANCER
     Route: 042
     Dates: start: 20150309, end: 20150309
  6. JEVTANA [Suspect]
     Active Substance: CABAZITAXEL
     Indication: HORMONE-REFRACTORY PROSTATE CANCER
     Route: 042
     Dates: start: 20150513, end: 20150513
  7. POLARAMINE [Concomitant]
     Active Substance: DEXCHLORPHENIRAMINE MALEATE
     Indication: PREMEDICATION
     Route: 042
     Dates: start: 20150513, end: 20150513
  8. JEVTANA [Suspect]
     Active Substance: CABAZITAXEL
     Indication: HORMONE-REFRACTORY PROSTATE CANCER
     Dates: start: 20150330, end: 20150330
  9. NEORAL [Concomitant]
     Active Substance: CYCLOSPORINE
     Indication: INTERSTITIAL LUNG DISEASE
     Route: 048
     Dates: start: 2014
  10. JEVTANA [Suspect]
     Active Substance: CABAZITAXEL
     Indication: HORMONE-REFRACTORY PROSTATE CANCER
     Dosage: PARENTERAL
     Route: 065
     Dates: start: 20150422, end: 20150422

REACTIONS (10)
  - Interstitial lung disease [Fatal]
  - Computerised tomogram abnormal [Fatal]
  - Neutrophil count decreased [Recovered/Resolved]
  - Oxygen saturation decreased [Fatal]
  - Tachypnoea [Fatal]
  - Dyspnoea [Fatal]
  - Pyrexia [Fatal]
  - Chest X-ray abnormal [Fatal]
  - Computerised tomogram thorax abnormal [Fatal]
  - Pneumocystis jirovecii pneumonia [Fatal]

NARRATIVE: CASE EVENT DATE: 20150523
